FAERS Safety Report 14212849 (Version 4)
Quarter: 2018Q1

REPORT INFORMATION
  Report Type: Report from Study
  Country: US (occurrence: US)
  Receive Date: 20171122
  Receipt Date: 20180117
  Transmission Date: 20180508
  Serious: Yes (Other)
  Sender: FDA-Public Use
  Company Number: US-BAYER-2017-218765

PATIENT
  Age: 68 Year
  Sex: Male

DRUGS (2)
  1. NEXAVAR [Suspect]
     Active Substance: SORAFENIB
     Indication: HEPATOCELLULAR CARCINOMA
     Dosage: 400 MG, BID
     Route: 048
     Dates: start: 20171113
  2. NEXAVAR [Suspect]
     Active Substance: SORAFENIB
     Indication: HEPATOCELLULAR CARCINOMA
     Dosage: 200 MG, BID
     Route: 048
     Dates: start: 20171103, end: 20171112

REACTIONS (12)
  - Dry mouth [None]
  - Dyspnoea [Recovering/Resolving]
  - Dry mouth [Recovered/Resolved]
  - Chest pain [Not Recovered/Not Resolved]
  - Feeling cold [None]
  - Blood pressure increased [Recovering/Resolving]
  - Fatigue [Recovering/Resolving]
  - Dysphonia [None]
  - Dysphonia [None]
  - Diarrhoea [None]
  - Depression [Recovering/Resolving]
  - Off label use [None]

NARRATIVE: CASE EVENT DATE: 201711
